FAERS Safety Report 6903887-3 (Version None)
Quarter: 2010Q3

REPORT INFORMATION
  Report Type: 
  Country: None (occurrence: None)
  Receive Date: 20100804
  Receipt Date: 20090203
  Transmission Date: 20110219
  Serious: No
  Sender: FDA-Public Use
  Company Number: US-PFIZER INC-2008089759

PATIENT
  Sex: Female
  Weight: 57.7 kg

DRUGS (5)
  1. LYRICA [Suspect]
     Indication: FIBROMYALGIA
     Dosage: 150 MG, 2X/DAY
     Route: 048
     Dates: start: 20080814
  2. MIRAPEX [Suspect]
     Dosage: 1 MG, 1X/DAY
  3. DRUG, UNSPECIFIED [Concomitant]
  4. FOSAMAX [Concomitant]
  5. NEXIUM [Concomitant]

REACTIONS (10)
  - ARTHRALGIA [None]
  - CHRONIC OBSTRUCTIVE PULMONARY DISEASE [None]
  - DRUG INEFFECTIVE [None]
  - DYSPNOEA [None]
  - EMPHYSEMA [None]
  - FIBROMYALGIA [None]
  - HYPOAESTHESIA [None]
  - JOINT SWELLING [None]
  - PAIN IN EXTREMITY [None]
  - WEIGHT INCREASED [None]
